FAERS Safety Report 10626199 (Version 1)
Quarter: 2014Q4

REPORT INFORMATION
  Report Type: Spontaneous
  Country: US (occurrence: None)
  Receive Date: 20141121
  Receipt Date: 20141121
  Transmission Date: 20150529
  Serious: No
  Sender: FDA-Public Use
  Company Number: 163-10004-14084994

PATIENT
  Age: 78 Year
  Sex: Female

DRUGS (8)
  1. OTEZLA [Suspect]
     Active Substance: APREMILAST
     Indication: PSORIATIC ARTHROPATHY
     Route: 048
     Dates: start: 20140606
  2. VERAPAMIL [Concomitant]
     Active Substance: VERAPAMIL HYDROCHLORIDE
  3. DIOVAN(VALSARTAN) [Concomitant]
  4. AZATHIOPRINE(AZATHIOPRINE)(UNKNOWN) [Concomitant]
  5. LEVOTHYROXINE(LEVOTHYROXINE) (LEVOTHYROXINE SODIUM) [Concomitant]
     Active Substance: LEVOTHYROXINE
  6. LANTUS(INSULINGLARGINE) [Concomitant]
  7. SIMVASTATIN (SIMVASTATIN) [Concomitant]
     Active Substance: SIMVASTATIN
  8. GLIPIZIDE(GLIPIZIDE) [Concomitant]

REACTIONS (3)
  - Diarrhoea [None]
  - Nausea [None]
  - Drug ineffective [None]

NARRATIVE: CASE EVENT DATE: 201406
